FAERS Safety Report 7285799-1 (Version None)
Quarter: 2011Q1

REPORT INFORMATION
  Report Type: 
  Country: None (occurrence: None)
  Receive Date: 20110210
  Receipt Date: 20110131
  Transmission Date: 20110831
  Serious: Yes (Life-Threatening, Hospitalization)
  Sender: FDA-Public Use
  Company Number: US-ACTELION-A-NJ2011-44038

PATIENT

DRUGS (2)
  1. REVATIO [Concomitant]
  2. TRACLEER [Suspect]
     Indication: PULMONARY ARTERIAL HYPERTENSION
     Dosage: 125 MG, BID
     Route: 048
     Dates: start: 20100514

REACTIONS (4)
  - ATRIOVENTRICULAR BLOCK [None]
  - PULMONARY HYPERTENSIVE CRISIS [None]
  - CARDIAC PACEMAKER INSERTION [None]
  - SYNCOPE [None]
